FAERS Safety Report 9259910 (Version 6)
Quarter: 2014Q2

REPORT INFORMATION
  Report Type: Spontaneous
  Country: US (occurrence: US)
  Receive Date: 20130429
  Receipt Date: 20140613
  Transmission Date: 20141212
  Serious: Yes (Disabling, Other)
  Sender: FDA-Public Use
  Company Number: US-ASTRAZENECA-2013SE27579

PATIENT
  Age: 17700 Day
  Sex: Female

DRUGS (34)
  1. NEXIUM [Suspect]
     Indication: GASTROOESOPHAGEAL REFLUX DISEASE
     Route: 048
  2. NEXIUM [Suspect]
     Indication: GASTROOESOPHAGEAL REFLUX DISEASE
     Route: 048
     Dates: start: 20050531
  3. NEXIUM [Suspect]
     Indication: GASTROOESOPHAGEAL REFLUX DISEASE
     Route: 048
     Dates: start: 20070808
  4. NEXIUM [Suspect]
     Indication: GASTROOESOPHAGEAL REFLUX DISEASE
     Route: 048
     Dates: start: 20080516
  5. NEXIUM [Suspect]
     Indication: GASTROOESOPHAGEAL REFLUX DISEASE
     Route: 048
     Dates: start: 20110223
  6. PREVACID [Suspect]
     Indication: GASTROOESOPHAGEAL REFLUX DISEASE
     Route: 048
     Dates: start: 1996
  7. TAGAMET [Concomitant]
     Indication: GASTROOESOPHAGEAL REFLUX DISEASE
     Dates: start: 1990
  8. PEPCID [Concomitant]
  9. PROZAC [Concomitant]
  10. CELEBREX [Concomitant]
     Dates: start: 20110406
  11. LISINOPRIL-HCTZ [Concomitant]
     Dosage: 20-12.5 MG
     Dates: start: 20110309
  12. CLONIDINE [Concomitant]
     Dates: start: 20110421
  13. METOPROLOL TARTRATE [Concomitant]
     Dates: start: 20110223
  14. PROPRANOLOL [Concomitant]
     Dates: start: 20110223
  15. PREMARIN [Concomitant]
     Dates: start: 20110421
  16. CRESTOR [Concomitant]
     Route: 048
     Dates: start: 20110309
  17. AMLODIPINE BESYLATE [Concomitant]
     Dates: start: 20110309
  18. ALPRAZOLAM/XANAX [Concomitant]
     Dates: start: 20110620
  19. ALPRAZOLAM/XANAX [Concomitant]
     Dates: start: 20060104
  20. DILTIAZEM [Concomitant]
     Dates: start: 20110620
  21. RAMIPRIL [Concomitant]
     Dates: start: 20081111
  22. PREDNISONE [Concomitant]
     Dosage: 2 TAB EVERY AM FOR 10 DAYS
     Dates: start: 20080128
  23. ZOLPIDEM [Concomitant]
     Dosage: 1 TAB AT BEDTIME
  24. ABILIFY [Concomitant]
     Dosage: 1 TAB DAILY
  25. FLUOXETINE [Concomitant]
     Route: 048
     Dates: start: 20080411
  26. TUMS [Concomitant]
  27. ALKA-SELTZER [Concomitant]
  28. MILK OF MAGNESIA [Concomitant]
  29. PEPTO-BISMOL [Concomitant]
  30. ROLAIDS [Concomitant]
  31. MYLANTA [Concomitant]
  32. LORTAB [Concomitant]
     Dates: start: 20050812
  33. TRAZADONE [Concomitant]
     Dates: start: 20060104
  34. BENICAR [Concomitant]
     Dates: start: 20060104

REACTIONS (21)
  - Hip fracture [Unknown]
  - Spinal fracture [Unknown]
  - Spinal osteoarthritis [Unknown]
  - Bipolar I disorder [Unknown]
  - Osteoarthritis [Unknown]
  - Bipolar disorder [Unknown]
  - Intervertebral disc protrusion [Unknown]
  - Spinal column stenosis [Unknown]
  - Osteoporosis [Unknown]
  - Bone disorder [Unknown]
  - Calcium deficiency [Unknown]
  - Hyperparathyroidism [Unknown]
  - Vitamin D deficiency [Unknown]
  - Osteopenia [Unknown]
  - Arthralgia [Unknown]
  - Lower limb fracture [Unknown]
  - Ankle fracture [Unknown]
  - Cubital tunnel syndrome [Unknown]
  - Emotional distress [Unknown]
  - Fibula fracture [Unknown]
  - Depression [Unknown]
